FAERS Safety Report 5541489-4 (Version None)
Quarter: 2007Q4

REPORT INFORMATION
  Report Type: 
  Country: None (occurrence: None)
  Receive Date: 20071210
  Receipt Date: 20071129
  Transmission Date: 20080405
  Serious: Yes (Other)
  Sender: FDA-Public Use
  Company Number: US-JNJFOC-20071102627

PATIENT
  Sex: Male

DRUGS (14)
  1. REMICADE [Suspect]
     Route: 042
  2. REMICADE [Suspect]
     Dosage: YEARS AGO
     Route: 042
  3. REMICADE [Suspect]
     Indication: CROHN'S DISEASE
     Dosage: YEARS AGO
     Route: 042
  4. COUMADIN [Concomitant]
  5. METOPROLOL [Concomitant]
  6. LISINOPRIL [Concomitant]
  7. PENTASA [Concomitant]
  8. AZASAN [Concomitant]
  9. BUPROPION HCL [Concomitant]
  10. DIGOXIN [Concomitant]
  11. POTASIUM [Concomitant]
  12. VERGONIL [Concomitant]
  13. TYLENOL [Concomitant]
     Indication: PREMEDICATION
  14. CLARITIN [Concomitant]
     Indication: PREMEDICATION

REACTIONS (9)
  - BACK PAIN [None]
  - BILE DUCT STONE [None]
  - CARDIAC FAILURE CONGESTIVE [None]
  - CHEST DISCOMFORT [None]
  - CHOLELITHIASIS [None]
  - FLUSHING [None]
  - HEADACHE [None]
  - INFUSION RELATED REACTION [None]
  - SINUS CONGESTION [None]
